FAERS Safety Report 5069316-2 (Version None)
Quarter: 2006Q3

REPORT INFORMATION
  Report Type: 
  Country: None (occurrence: None)
  Receive Date: 20060803
  Receipt Date: 20060717
  Transmission Date: 20061208
  Serious: Yes (Hospitalization)
  Sender: FDA-Public Use
  Company Number: PHEH2006US09227

PATIENT
  Age: 80 Year
  Sex: Female
  Weight: 55.328 kg

DRUGS (9)
  1. EXJADE [Suspect]
     Indication: MYELODYSPLASTIC SYNDROME
     Dosage: 250 MG, 4 TABS QD
     Route: 048
     Dates: start: 20060522
  2. EXJADE [Suspect]
     Dosage: 250MG, 3 TABS QD
     Dates: start: 20060509
  3. EXJADE [Suspect]
     Dosage: 250MG, 5 TABS QD
     Route: 048
     Dates: start: 20060422
  4. MYLERAN [Concomitant]
     Dosage: 2 MG, TIW
     Dates: start: 20050613
  5. CALCIUM WITH VITAMIN D [Concomitant]
     Dosage: 1200 MG, QD
  6. PROCRIT /00909301/ [Concomitant]
     Dosage: 40000 UNITS, QW
     Dates: start: 20051001
  7. PROCRIT /00909301/ [Concomitant]
     Dosage: 60000 UNITS, QW
     Dates: start: 20051201
  8. NORVASC [Concomitant]
     Dosage: 2.5 MG, QD
  9. ACETYLSALICYLIC ACID SRT [Concomitant]
     Dosage: 81 MG, QD

REACTIONS (8)
  - ALANINE AMINOTRANSFERASE INCREASED [None]
  - ASPARTATE AMINOTRANSFERASE INCREASED [None]
  - BLOOD ALKALINE PHOSPHATASE INCREASED [None]
  - BLOOD BILIRUBIN INCREASED [None]
  - CHROMATURIA [None]
  - FAECES PALE [None]
  - HEPATIC ENZYME INCREASED [None]
  - JAUNDICE [None]
